FAERS Safety Report 8807789 (Version 1)
Quarter: 2012Q4

REPORT INFORMATION
  Report Type: Report from Study
  Country: DE (occurrence: DE)
  Receive Date: 20120925
  Receipt Date: 20120925
  Transmission Date: 20130627
  Serious: Yes (Hospitalization, Other)
  Sender: FDA-Public Use
  Company Number: DE-ABBOTT-12P-062-0957201-00

PATIENT
  Age: 46 Year
  Sex: Male
  Weight: 111 kg

DRUGS (1)
  1. HUMIRA 40 MG/ 0.8 ML PRE-FILLED SYRINGE [Suspect]
     Indication: PSORIASIS
     Route: 058
     Dates: start: 200806

REACTIONS (6)
  - Nephrolithiasis [Recovered/Resolved]
  - Phlebectomy [Recovered/Resolved]
  - Borrelia infection [Recovered/Resolved]
  - Skin papilloma [Not Recovered/Not Resolved]
  - Acanthosis [Recovered/Resolved]
  - Hyperthyroidism [Not Recovered/Not Resolved]
